FAERS Safety Report 10423447 (Version 3)
Quarter: 2015Q2

REPORT INFORMATION
  Report Type: Spontaneous
  Country: US (occurrence: US)
  Receive Date: 20140730
  Receipt Date: 20150524
  Transmission Date: 20150821
  Serious: Yes (Other)
  Sender: FDA-Public Use
  Company Number: US-JNJFOC-20130713835

PATIENT
  Sex: Female

DRUGS (1)
  1. KETOCONAZOLE. [Suspect]
     Active Substance: KETOCONAZOLE
     Indication: PITUITARY-DEPENDENT CUSHING^S SYNDROME
     Route: 048

REACTIONS (2)
  - Product use issue [Unknown]
  - Adrenocortical insufficiency acute [Unknown]
